FAERS Safety Report 4767463-3 (Version None)
Quarter: 2005Q3

REPORT INFORMATION
  Report Type: 
  Country: None (occurrence: None)
  Receive Date: 20050913
  Receipt Date: 20050912
  Transmission Date: 20060218
  Serious: Yes (Other)
  Sender: FDA-Public Use
  Company Number: JP-SANOFI-SYNTHELABO-F01200501851

PATIENT
  Age: 60 Year
  Sex: Female
  Weight: 44 kg

DRUGS (3)
  1. OXALIPLATIN [Suspect]
     Indication: COLON CANCER
     Route: 042
     Dates: start: 20050606, end: 20050606
  2. FLUOROURACIL [Suspect]
     Dosage: 524 MG (400 MG/M2) IV BOLUS AND 917 MG (700 MG/M2) IV CONTINUOUS INFUSION DAYS 1+2, Q2W
     Route: 042
     Dates: start: 20050606, end: 20050607
  3. CALCIUM LEVOFOLINATE [Suspect]
     Route: 042
     Dates: start: 20050606, end: 20050607

REACTIONS (1)
  - ARRHYTHMIA [None]
